FAERS Safety Report 6054930-8 (Version None)
Quarter: 2009Q1

REPORT INFORMATION
  Report Type: 
  Country: None (occurrence: None)
  Receive Date: 20090128
  Receipt Date: 20090122
  Transmission Date: 20090719
  Serious: Yes (Death, Other)
  Sender: FDA-Public Use
  Company Number: PHHY2008JP33154

PATIENT
  Age: 76 Year
  Sex: Female
  Weight: 64 kg

DRUGS (19)
  1. NEORAL [Suspect]
     Indication: PEMPHIGOID
     Dosage: 150 MG/DAY
     Route: 048
     Dates: start: 20080225, end: 20080801
  2. NEORAL [Suspect]
     Dosage: 200 MG/DAY
     Route: 048
     Dates: start: 20080801
  3. NEORAL [Suspect]
     Dosage: 100 MG/DAY
     Route: 048
     Dates: start: 20080101, end: 20081222
  4. PREDONINE [Concomitant]
     Indication: PEMPHIGOID
     Dosage: 20 MG/DAY
     Route: 048
     Dates: start: 20051201
  5. PREDONINE [Concomitant]
     Dosage: 50 MG/DAY
     Route: 048
     Dates: start: 20081001, end: 20081110
  6. GASTER D [Suspect]
     Indication: REFLUX OESOPHAGITIS
     Dosage: 20 MG/DAY
     Route: 048
     Dates: start: 20060124, end: 20081218
  7. BONALON [Suspect]
     Indication: OSTEOPOROSIS
     Dosage: 35 MG/DAY
     Route: 048
     Dates: start: 20080522, end: 20081218
  8. BAKTAR [Suspect]
     Indication: INFECTION PROPHYLAXIS
     Dosage: 4 DF/DAY
     Route: 048
     Dates: start: 20081106, end: 20081211
  9. RINDERON [Suspect]
     Indication: PEMPHIGOID
     Dosage: 6 MG/DAY
     Route: 048
     Dates: start: 20081110, end: 20081222
  10. RINDERON [Suspect]
     Dosage: 5 MG/DAY
     Dates: start: 20081223
  11. MAGNESIUM OXIDE [Suspect]
     Indication: CONSTIPATION
     Dosage: 2 G/DAY
     Route: 048
     Dates: start: 20081117, end: 20081215
  12. GLYCYRON [Suspect]
     Indication: HEPATIC FUNCTION ABNORMAL
     Dosage: 6 DF/DAY
     Route: 048
     Dates: start: 20081125, end: 20081211
  13. KALIMATE [Suspect]
     Indication: HYPERKALAEMIA
     Dosage: 15G/DAY
     Route: 048
     Dates: start: 20081126, end: 20081211
  14. ALFAROL [Suspect]
     Indication: OSTEOPOROSIS
     Dosage: 1 UG/DAY
     Route: 048
     Dates: start: 20081204
  15. NORVASC [Concomitant]
     Indication: HYPERTENSION
     Dosage: 5 MG/DAY
     Route: 048
     Dates: start: 20060124, end: 20081226
  16. ACTOS [Concomitant]
     Indication: DIABETES MELLITUS
     Dosage: 15 MG/DAY
     Route: 048
     Dates: start: 20060124, end: 20081226
  17. DELUX-C [Concomitant]
     Indication: PIGMENTATION DISORDER
     Dosage: 2 G/DAY
     Route: 048
     Dates: start: 20061211, end: 20081226
  18. NYCLIN [Concomitant]
     Indication: PEMPHIGOID
     Dosage: 2 G/DAY
     Route: 048
     Dates: start: 20060906, end: 20081226
  19. TAKEPRON [Concomitant]
     Dosage: 15 MG/DAY

REACTIONS (19)
  - ANOREXIA [None]
  - BLOOD PRESSURE DECREASED [None]
  - BODY TEMPERATURE INCREASED [None]
  - CONDITION AGGRAVATED [None]
  - CONSTIPATION [None]
  - ELECTROLYTE IMBALANCE [None]
  - GENERAL PHYSICAL HEALTH DETERIORATION [None]
  - HEPATIC FUNCTION ABNORMAL [None]
  - HYPERKALAEMIA [None]
  - HYPOALBUMINAEMIA [None]
  - HYPOCHLORAEMIA [None]
  - HYPONATRAEMIA [None]
  - OSTEOPOROSIS [None]
  - PLATELET COUNT DECREASED [None]
  - PLEURAL EFFUSION [None]
  - PULMONARY TUBERCULOSIS [None]
  - RASH [None]
  - SEPSIS [None]
  - TREATMENT NONCOMPLIANCE [None]
